FAERS Safety Report 8661384 (Version 3)
Quarter: 2013Q3

REPORT INFORMATION
  Report Type: Report from Study
  Country: DE (occurrence: DE)
  Receive Date: 20120626
  Receipt Date: 20130814
  Transmission Date: 20140515
  Serious: Yes (Other)
  Sender: FDA-Public Use
  Company Number: DE-009507513-2012SP033190

PATIENT
  Age: 17 Year
  Sex: Female
  Weight: 50 kg

DRUGS (7)
  1. PEGINTERFERON ALFA-2B [Suspect]
     Indication: CONDITION AGGRAVATED
     Dosage: 1 ?G, QW
     Dates: start: 20110413, end: 20120314
  2. DOXORUBICIN [Suspect]
     Indication: PRODUCT USED FOR UNKNOWN INDICATION
     Dosage: UNK
     Route: 042
     Dates: start: 20081002, end: 20090701
  3. DICLOFENAC [Concomitant]
     Dosage: UNK
     Dates: start: 201112
  4. OXYCODONE [Concomitant]
     Dosage: UNK
     Dates: start: 201112
  5. ACETAMINOPHEN [Concomitant]
     Dosage: UNK
     Dates: start: 201112
  6. CLONIDINE [Concomitant]
     Dosage: UNK
     Dates: start: 201112
  7. HORMONAL CONTRACEPTIVES (UNSPECIFIED) [Concomitant]
     Route: 048

REACTIONS (3)
  - Ejection fraction decreased [Recovering/Resolving]
  - Cardiac function test abnormal [Recovering/Resolving]
  - Left ventricular dysfunction [Not Recovered/Not Resolved]
